FAERS Safety Report 19834244 (Version 3)
Quarter: 2021Q4

REPORT INFORMATION
  Report Type: Spontaneous
  Country: US (occurrence: US)
  Receive Date: 20210915
  Receipt Date: 20211103
  Transmission Date: 20220303
  Serious: Yes (Other)
  Sender: FDA-Public Use
  Company Number: US-JNJFOC-20210855512

PATIENT
  Age: 81 Year
  Sex: Female
  Weight: 58.112 kg

DRUGS (8)
  1. NEUTROGENA COOLDRY SPORT SUNSCREEN BROAD SPECTRUM SPF100 [Suspect]
     Active Substance: AVOBENZONE\HOMOSALATE\OCTISALATE\OCTOCRYLENE\OXYBENZONE
     Indication: Product used for unknown indication
     Dosage: THERAPY STARTED PRIOR JUN-2021; USED 3 TIMES IN 2021, ALSO USED LAST YEAR
     Route: 061
     Dates: end: 202106
  2. SIMVASTATIN [Concomitant]
     Active Substance: SIMVASTATIN
     Indication: Cerebrovascular accident
     Dosage: 20 MG
     Route: 065
     Dates: start: 20111112
  3. LISINOPRIL [Concomitant]
     Active Substance: LISINOPRIL
     Indication: Cerebrovascular accident
     Dosage: 12.5MG
     Route: 065
     Dates: start: 20111112
  4. ASPIRIN [Concomitant]
     Active Substance: ASPIRIN
     Indication: Cerebrovascular accident
     Dosage: 325 MG
     Route: 065
     Dates: start: 20111112
  5. OMEPRAZOLE [Concomitant]
     Active Substance: OMEPRAZOLE
     Indication: Product used for unknown indication
     Dosage: 20MG
     Route: 065
  6. OMEGA 3 FISH OIL [FISH OIL] [Concomitant]
     Indication: Bone disorder
     Dosage: 1000 MG
     Route: 065
  7. CALCIUM [Concomitant]
     Active Substance: CALCIUM
     Indication: Bone disorder
     Dosage: 600 MG
     Route: 065
  8. VITAMIN D3 [Concomitant]
     Active Substance: CHOLECALCIFEROL
     Indication: Bone disorder
     Dosage: 25 MG
     Route: 065

REACTIONS (2)
  - Skin cancer [Recovered/Resolved]
  - Application site nodule [Recovering/Resolving]

NARRATIVE: CASE EVENT DATE: 20210101
